FAERS Safety Report 5928470-8 (Version None)
Quarter: 2008Q4

REPORT INFORMATION
  Report Type: 
  Country: None (occurrence: None)
  Receive Date: 20081020
  Receipt Date: 20081008
  Transmission Date: 20090506
  Serious: Yes (Hospitalization, Disabling, Other)
  Sender: FDA-Public Use
  Company Number: OMPQ-NO-0708S-1096

PATIENT
  Age: 77 Year
  Sex: Female

DRUGS (2)
  1. OMNIPAQUE 140 [Suspect]
     Indication: BACK PAIN
     Dosage: 2 ML, SINGLE DOSE, PERINEURAL
     Route: 053
     Dates: start: 20070626, end: 20070626
  2. PREDNISOLONE (HYDROCHLORIODE) [Concomitant]

REACTIONS (4)
  - INFUSION RELATED REACTION [None]
  - ISCHAEMIA [None]
  - PARAESTHESIA [None]
  - PARAPLEGIA [None]
